FAERS Safety Report 8320604 (Version 5)
Quarter: 2012Q4

REPORT INFORMATION
  Report Type: Report from Study
  Country: FR (occurrence: FR)
  Receive Date: 20120104
  Receipt Date: 20120829
  Transmission Date: 20130627
  Serious: Yes (Death, Hospitalization)
  Sender: FDA-Public Use
  Company Number: FR-SANOFI-AVENTIS-2012SA000111

PATIENT
  Age: 68 Year
  Sex: Male
  Weight: 98 kg

DRUGS (8)
  1. CABAZITAXEL [Suspect]
     Indication: PROSTATE CANCER
     Route: 042
     Dates: start: 20111227, end: 20111227
  2. PREDNISONE [Suspect]
     Indication: PROSTATE CANCER
     Route: 048
     Dates: start: 20111227, end: 20111228
  3. METFORMIN [Concomitant]
     Route: 048
     Dates: start: 2008
  4. GLICLAZIDE [Concomitant]
     Route: 048
     Dates: start: 2008
  5. GLIMEPIRIDE [Concomitant]
     Route: 048
     Dates: start: 2008
  6. PREVISCAN [Concomitant]
     Route: 048
     Dates: start: 1998
  7. FUROSEMIDE [Concomitant]
     Route: 048
     Dates: start: 1998
  8. DIFFU K [Concomitant]
     Route: 048
     Dates: start: 1998

REACTIONS (3)
  - Diabetes mellitus [Not Recovered/Not Resolved]
  - Cerebral haemorrhage [Fatal]
  - Erysipelas [Not Recovered/Not Resolved]
